FAERS Safety Report 18959512 (Version 2)
Quarter: 2021Q1

REPORT INFORMATION
  Report Type: Spontaneous
  Country: US (occurrence: US)
  Receive Date: 20210302
  Receipt Date: 20210310
  Transmission Date: 20210420
  Serious: Yes (Other)
  Sender: FDA-Public Use
  Company Number: US-ALEMBIC PHARMACUETICALS LIMITED-2021SCAL000098

PATIENT

DRUGS (2)
  1. HYDROCHLOROTHIAZIDE. [Suspect]
     Active Substance: HYDROCHLOROTHIAZIDE
     Indication: PRODUCT USED FOR UNKNOWN INDICATION
     Dosage: UNK
  2. HYDROXYZINE [Concomitant]
     Active Substance: HYDROXYZINE HYDROCHLORIDE
     Indication: PRODUCT USED FOR UNKNOWN INDICATION
     Dosage: UNK

REACTIONS (7)
  - Oedema peripheral [Recovered/Resolved]
  - Lupus-like syndrome [Recovered/Resolved]
  - Leukopenia [Recovered/Resolved]
  - Rash maculo-papular [Recovered/Resolved]
  - Blood creatinine increased [Recovered/Resolved]
  - Rash erythematous [Recovered/Resolved]
  - Rash [Recovered/Resolved]
